FAERS Safety Report 13508228 (Version 1)
Quarter: 2017Q2

REPORT INFORMATION
  Report Type: Spontaneous
  Country: JP (occurrence: JP)
  Receive Date: 20170503
  Receipt Date: 20170503
  Transmission Date: 20170830
  Serious: Yes (Death)
  Sender: FDA-Public Use
  Company Number: JP-ASTRAZENECA-2017SE19080

PATIENT
  Age: 82 Year
  Sex: Male
  Weight: 53 kg

DRUGS (1)
  1. IRESSA [Suspect]
     Active Substance: GEFITINIB
     Indication: NON-SMALL CELL LUNG CANCER
     Route: 048
     Dates: start: 20160503, end: 20170101

REACTIONS (2)
  - Malignant neoplasm progression [Fatal]
  - Dermatitis acneiform [Unknown]
